FAERS Safety Report 25616859 (Version 1)
Quarter: 2025Q3

REPORT INFORMATION
  Report Type: Spontaneous
  Country: GB (occurrence: GB)
  Receive Date: 20250729
  Receipt Date: 20250729
  Transmission Date: 20251021
  Serious: Yes (Hospitalization)
  Sender: BAYER HEALTHCARE PHARMACEUTICALS INC.
  Company Number: None

PATIENT
  Age: 91 Year
  Sex: Female

DRUGS (8)
  1. CIPROFLOXACIN [Suspect]
     Active Substance: CIPROFLOXACIN
     Dosage: 500 MG, BID
     Route: 048
     Dates: end: 20250708
  2. DOCUSATE [Concomitant]
     Active Substance: DOCUSATE
     Dosage: 2000 MG, BID (TWO CAPSULES TWICE A DAY,100 CAPSULE - NOT TAKING )
     Route: 048
  3. RANITIDINE HYDROCHLORIDE [Concomitant]
     Active Substance: RANITIDINE HYDROCHLORIDE
     Route: 048
  4. ACETAMINOPHEN [Concomitant]
     Active Substance: ACETAMINOPHEN
     Route: 048
  5. AMLODIPINE [Concomitant]
     Active Substance: AMLODIPINE BESYLATE
     Dosage: 2.5 MG, QD (TAKE ONE TABLET EACH DAY,28 TABLET )
     Route: 048
  6. OMEPRAZOLE [Concomitant]
     Active Substance: OMEPRAZOLE
     Dosage: 40 MG, QD (28CAPSULE - NOT TAKING)
     Route: 048
  7. SENNA [Concomitant]
     Active Substance: SENNOSIDES
     Dosage: 7.5 MG TABLETS, TWO TO BE TAKEN AT NIGHT,60 TABLET - NOT TAKING
     Route: 048
  8. RAMIPRIL [Concomitant]
     Active Substance: RAMIPRIL
     Dosage: 5MG CAPSULES, ONE TO BE TAKEN EACH DAY,28 CAPSULE
     Route: 048
     Dates: start: 20250501

REACTIONS (1)
  - Vertigo [Unknown]
